FAERS Safety Report 9353740 (Version 1)
Quarter: 2013Q2

REPORT INFORMATION
  Report Type: Spontaneous
  Country: US (occurrence: None)
  Receive Date: 20130617
  Receipt Date: 20130617
  Transmission Date: 20140414
  Serious: Yes (Hospitalization)
  Sender: FDA-Public Use
  Company Number: None

PATIENT
  Age: 70 Year
  Sex: Male

DRUGS (8)
  1. ZYTIGA 250MG [Suspect]
     Route: 048
     Dates: start: 20130515, end: 20130611
  2. PREDNISONE [Suspect]
     Indication: DRUG THERAPY
     Route: 048
     Dates: start: 20130515, end: 20130611
  3. ASPIRIN [Concomitant]
  4. CALCIUM [Concomitant]
  5. CELEBREX [Concomitant]
  6. ENALAPRIL [Concomitant]
  7. METOPROLOL [Concomitant]
  8. SIMVASTATIN [Concomitant]

REACTIONS (3)
  - Constipation [None]
  - Nausea [None]
  - Vomiting [None]
